FAERS Safety Report 7263658-8 (Version None)
Quarter: 2011Q1

REPORT INFORMATION
  Report Type: 
  Country: None (occurrence: None)
  Receive Date: 20110130
  Receipt Date: 20101214
  Transmission Date: 20110831
  Serious: No
  Sender: FDA-Public Use
  Company Number: US-ABBOTT-10P-163-0692067-00

PATIENT
  Sex: Female
  Weight: 99.88 kg

DRUGS (5)
  1. LISINOPRIL [Concomitant]
     Indication: HYPERTENSION
     Route: 048
  2. TACLONEX [Concomitant]
     Indication: PSORIASIS
     Route: 061
  3. HUMIRA [Suspect]
     Indication: PSORIASIS
  4. HUMIRA [Suspect]
     Indication: PSORIATIC ARTHROPATHY
     Route: 058
     Dates: start: 20060101, end: 20101020
  5. BIRTH CONTROL PILL [Concomitant]
     Indication: CONTRACEPTION

REACTIONS (4)
  - PAIN IN EXTREMITY [None]
  - GAIT DISTURBANCE [None]
  - LOCALISED INFECTION [None]
  - OEDEMA PERIPHERAL [None]
